FAERS Safety Report 21767445 (Version 1)
Quarter: 2022Q4

REPORT INFORMATION
  Report Type: Spontaneous
  Country: US (occurrence: US)
  Receive Date: 20221222
  Receipt Date: 20221222
  Transmission Date: 20230112
  Serious: No
  Sender: FDA-Public Use
  Company Number: US-drreddys-SPO/USA/22/0158037

PATIENT
  Age: 26 Year
  Sex: Female

DRUGS (3)
  1. LAMOTRIGINE [Suspect]
     Active Substance: LAMOTRIGINE
     Indication: Affective disorder
     Dosage: 50 (UNKNOWN UNITS)
     Dates: start: 20220104, end: 20220803
  2. LAMOTRIGINE [Suspect]
     Active Substance: LAMOTRIGINE
     Dosage: 100 (UNKNOWN UNITS)
     Dates: start: 20220104, end: 20220803
  3. KLONOPIN [Suspect]
     Active Substance: CLONAZEPAM
     Indication: Affective disorder
     Dosage: 0.5 UNKNOWN UNITS
     Dates: start: 20220104, end: 20220803

REACTIONS (3)
  - Premature baby [Unknown]
  - Exposure during pregnancy [Unknown]
  - Product use in unapproved indication [Unknown]

NARRATIVE: CASE EVENT DATE: 20220803
